FAERS Safety Report 6179408-2 (Version None)
Quarter: 2009Q2

REPORT INFORMATION
  Report Type: 
  Country: None (occurrence: None)
  Receive Date: 20090505
  Receipt Date: 20090501
  Transmission Date: 20091009
  Serious: Yes (Other)
  Sender: FDA-Public Use
  Company Number: A0781655A

PATIENT
  Age: 62 Year
  Sex: Female

DRUGS (12)
  1. LOVAZA [Suspect]
     Dosage: 2CAP PER DAY
     Route: 048
     Dates: start: 20081101
  2. HYDROCHLOROTHIAZIDE [Concomitant]
  3. ASPIRIN [Concomitant]
  4. VITAMIN B6 [Concomitant]
  5. VITAMIN B-12 [Concomitant]
  6. TOPROL-XL [Concomitant]
  7. CRESTOR [Concomitant]
  8. FOLIC ACID [Concomitant]
  9. ZETIA [Concomitant]
  10. LISINOPRIL [Concomitant]
  11. ISOSORBID MONONITRATE [Concomitant]
  12. METFORMIN HCL [Concomitant]

REACTIONS (2)
  - HEPATIC ENZYME INCREASED [None]
  - LOW DENSITY LIPOPROTEIN INCREASED [None]
